FAERS Safety Report 11748533 (Version 3)
Quarter: 2016Q2

REPORT INFORMATION
  Report Type: Report from Study
  Country: US (occurrence: US)
  Receive Date: 20151117
  Receipt Date: 20160602
  Transmission Date: 20160815
  Serious: Yes (Other)
  Sender: FDA-Public Use
  Company Number: US-AMGEN-USASL2015121341

PATIENT
  Age: 77 Year
  Sex: Female

DRUGS (1)
  1. ENBREL [Suspect]
     Active Substance: ETANERCEPT
     Indication: PSORIATIC ARTHROPATHY
     Dosage: 50 MG, WEEKLY
     Route: 065
     Dates: start: 20141031

REACTIONS (2)
  - Pain [Not Recovered/Not Resolved]
  - Neoplasm malignant [Unknown]

NARRATIVE: CASE EVENT DATE: 2015
